FAERS Safety Report 8555403-0 (Version None)
Quarter: 2012Q3

REPORT INFORMATION
  Report Type: 
  Country: None (occurrence: None)
  Receive Date: 20120731
  Receipt Date: 20111125
  Transmission Date: 20120928
  Serious: No
  Sender: FDA-Public Use
  Company Number: US-ASTRAZENECA-2011SE34830

PATIENT
  Age: 58 Year
  Sex: Male

DRUGS (1)
  1. SEROQUEL XR [Suspect]
     Dosage: 20 MG, 400 MG AND 50 MG, UNKNOWN
     Route: 048

REACTIONS (2)
  - SOMNOLENCE [None]
  - VISUAL IMPAIRMENT [None]
